FAERS Safety Report 17447704 (Version 3)
Quarter: 2020Q1

REPORT INFORMATION
  Report Type: Report from Study
  Country: None (occurrence: US)
  Receive Date: 20200221
  Receipt Date: 20200325
  Transmission Date: 20200409
  Serious: Yes (Hospitalization)
  Sender: FDA-Public Use
  Company Number: US-ABBVIE-20P-163-3284820-00

PATIENT
  Age: 64 Year
  Sex: Male
  Weight: 93.1 kg

DRUGS (11)
  1. CYCLOPHOSPHAMIDE. [Concomitant]
     Active Substance: CYCLOPHOSPHAMIDE
     Route: 042
     Dates: start: 20200128, end: 20200131
  2. IBRUTINIB [Suspect]
     Active Substance: IBRUTINIB
     Indication: MANTLE CELL LYMPHOMA
     Route: 048
     Dates: start: 20191006, end: 20200119
  3. VINCRISTINE [Concomitant]
     Active Substance: VINCRISTINE
     Indication: MANTLE CELL LYMPHOMA
     Route: 042
     Dates: start: 20200131, end: 20200131
  4. CYCLOPHOSPHAMIDE. [Concomitant]
     Active Substance: CYCLOPHOSPHAMIDE
     Indication: MANTLE CELL LYMPHOMA
     Route: 042
     Dates: start: 20200128, end: 20200129
  5. DOXORUBICIN [Concomitant]
     Active Substance: DOXORUBICIN
     Route: 042
     Dates: start: 20200131, end: 20200201
  6. CYTARABINE. [Concomitant]
     Active Substance: CYTARABINE
     Indication: MANTLE CELL LYMPHOMA
     Route: 065
  7. VENETOCLAX. [Suspect]
     Active Substance: VENETOCLAX
     Indication: MANTLE CELL LYMPHOMA
     Route: 048
     Dates: start: 20191028, end: 20200126
  8. RITUXIMAB. [Concomitant]
     Active Substance: RITUXIMAB
     Indication: MANTLE CELL LYMPHOMA
     Route: 042
     Dates: start: 20190610, end: 20200120
  9. METHOTREXATE. [Concomitant]
     Active Substance: METHOTREXATE
     Indication: MANTLE CELL LYMPHOMA
     Route: 065
  10. DOXORUBICIN [Concomitant]
     Active Substance: DOXORUBICIN
     Indication: MANTLE CELL LYMPHOMA
     Route: 042
     Dates: start: 20200131, end: 20200131
  11. DEXAMETHASONE. [Concomitant]
     Active Substance: DEXAMETHASONE
     Indication: MANTLE CELL LYMPHOMA
     Route: 065

REACTIONS (3)
  - Mucosal inflammation [Recovering/Resolving]
  - Acute kidney injury [Unknown]
  - Febrile neutropenia [Recovering/Resolving]

NARRATIVE: CASE EVENT DATE: 20200207
